FAERS Safety Report 6945138-X (Version None)
Quarter: 2010Q3

REPORT INFORMATION
  Report Type: 
  Country: None (occurrence: None)
  Receive Date: 20100818
  Receipt Date: 20100805
  Transmission Date: 20110219
  Serious: Yes (Hospitalization)
  Sender: FDA-Public Use
  Company Number: CTI_01223_2010

PATIENT
  Age: 24 Year
  Sex: Male

DRUGS (5)
  1. MEIACT (MEIACT MS (CEFDITOREN PIVOXIL)) (NOT SPECIFIED) [Suspect]
     Indication: STREPTOCOCCAL INFECTION
     Dosage: (300 MG ORAL)
     Route: 048
     Dates: start: 20100724, end: 20100727
  2. MEIACT (MEIACT MS (CEFDITOREN PIVOXIL)) (NOT SPECIFIED) [Suspect]
     Indication: STREPTOCOCCAL INFECTION
     Dosage: (300 MG ORAL)
     Route: 048
     Dates: start: 20100730, end: 20100804
  3. BRUFEN /00109201/ (BRUFEN (IBUPROFEN)) (NOT SPECIFIED) [Suspect]
     Indication: STREPTOCOCCAL INFECTION
     Dosage: (300 MG ORAL)
     Route: 048
     Dates: start: 20100724, end: 20100727
  4. BRUFEN /00109201/ (BRUFEN (IBUPROFEN)) (NOT SPECIFIED) [Suspect]
     Indication: STREPTOCOCCAL INFECTION
     Dosage: (300 MG ORAL)
     Route: 048
     Dates: start: 20100730, end: 20100804
  5. GLYCYRON /00466401/ (GLYCYRON (MONOAMMONIUM GLYCYRRHIZINATE/GLYCINE, A [Suspect]
     Indication: STREPTOCOCCAL INFECTION
     Dosage: (600 MG ORAL)
     Route: 048
     Dates: start: 20100730, end: 20100804

REACTIONS (3)
  - ANAPHYLACTIC SHOCK [None]
  - MALAISE [None]
  - TREATMENT NONCOMPLIANCE [None]
